FAERS Safety Report 9492140 (Version 2)
Quarter: 2014Q1

REPORT INFORMATION
  Report Type: Spontaneous
  Country: MX (occurrence: MX)
  Receive Date: 20130830
  Receipt Date: 20140127
  Transmission Date: 20141002
  Serious: No
  Sender: FDA-Public Use
  Company Number: MX-ACTELION-A-CH2013-87694

PATIENT
  Age: 1 Month
  Sex: Female

DRUGS (5)
  1. TRACLEER [Suspect]
     Indication: EXPOSURE VIA BODY FLUID
     Dosage: 125 MG, BID
     Route: 050
  2. SILDENAFIL [Concomitant]
     Indication: EXPOSURE VIA BODY FLUID
     Dosage: 25 MG, QD
  3. ASA [Concomitant]
     Indication: EXPOSURE VIA BODY FLUID
     Dosage: 100 MG, UNK
  4. PROPRANOLOL [Concomitant]
     Indication: EXPOSURE VIA BODY FLUID
     Dosage: 20 MG, BID
  5. SPIRONOLACTONE [Concomitant]

REACTIONS (2)
  - Normal newborn [Unknown]
  - Exposure via father [Unknown]
